FAERS Safety Report 8473040 (Version 3)
Quarter: 2012Q4

REPORT INFORMATION
  Report Type: 
  Country: US (occurrence: US)
  Receive Date: 20120322
  Receipt Date: 20121224
  Transmission Date: 20130627
  Serious: Yes (Hospitalization, Other)
  Sender: FDA-Public Use
  Company Number: PHEH2012US006231

PATIENT
  Age: 24 Year
  Sex: Female

DRUGS (2)
  1. GILENYA [Suspect]
     Indication: RELAPSING-REMITTING MULTIPLE SCLEROSIS
     Dosage: 1 DF, QD
     Route: 048
     Dates: start: 20110912, end: 20120118
  2. COPAXONE [Suspect]

REACTIONS (5)
  - Cellulitis [Unknown]
  - Oedema peripheral [Unknown]
  - Skin disorder [Unknown]
  - Diarrhoea [Unknown]
  - Urticaria [Unknown]
